FAERS Safety Report 5809990-3 (Version None)
Quarter: 2008Q3

REPORT INFORMATION
  Report Type: 
  Country: None (occurrence: None)
  Receive Date: 20080715
  Receipt Date: 20080707
  Transmission Date: 20090109
  Serious: Yes (Hospitalization)
  Sender: FDA-Public Use
  Company Number: US-MERCK-0807USA01265

PATIENT
  Age: 75 Year
  Sex: Female

DRUGS (12)
  1. COZAAR [Suspect]
     Indication: HYPERTENSION
     Route: 048
     Dates: start: 20030701
  2. HYDRODIURIL [Suspect]
     Indication: HYPERTENSION
     Route: 048
     Dates: end: 20070701
  3. HYDRODIURIL [Suspect]
     Route: 048
     Dates: start: 20030701, end: 20030802
  4. AMITRIPTYLINE HYDROCHLORIDE [Concomitant]
     Route: 065
  5. K-TAB [Concomitant]
     Route: 065
     Dates: end: 20030802
  6. PEPCID [Concomitant]
     Route: 048
  7. VERAPAMIL [Concomitant]
     Indication: HYPERTENSION
     Route: 065
  8. PREMARIN [Concomitant]
     Route: 065
  9. CLONIDINE [Concomitant]
     Route: 048
  10. VIOXX [Concomitant]
     Route: 065
  11. FIORINAL [Concomitant]
     Indication: HEADACHE
     Route: 065
  12. IMITREX [Concomitant]
     Indication: HEADACHE
     Route: 065

REACTIONS (4)
  - DIZZINESS [None]
  - HYPERHIDROSIS [None]
  - HYPONATRAEMIA [None]
  - PRESYNCOPE [None]
